FAERS Safety Report 7376858-3 (Version None)
Quarter: 2011Q1

REPORT INFORMATION
  Report Type: 
  Country: None (occurrence: None)
  Receive Date: 20110326
  Receipt Date: 20110311
  Transmission Date: 20110831
  Serious: Yes (Hospitalization)
  Sender: FDA-Public Use
  Company Number: NL-SPECTRUM PHARMACEUTICALS, INC.-11-Z-NL-00021

PATIENT
  Sex: Male

DRUGS (3)
  1. ZEVALIN [Suspect]
  2. ZEVALIN [Suspect]
     Indication: NON-HODGKIN'S LYMPHOMA
     Dosage: UNK, SINGLE
     Route: 065
     Dates: start: 20100106, end: 20100106
  3. RITUXAN [Suspect]
     Route: 065

REACTIONS (3)
  - LYMPHOMA [None]
  - MALAISE [None]
  - OFF LABEL USE [None]
